FAERS Safety Report 16961187 (Version 1)
Quarter: 2019Q4

REPORT INFORMATION
  Report Type: Spontaneous
  Country: RU (occurrence: RU)
  Receive Date: 20191025
  Receipt Date: 20191025
  Transmission Date: 20200122
  Serious: Yes (Hospitalization, Other)
  Sender: FDA-Public Use
  Company Number: RU-ROCHE-2443303

PATIENT
  Age: 6 Year
  Sex: Female

DRUGS (11)
  1. PREDNISOLONE. [Suspect]
     Active Substance: PREDNISOLONE
     Indication: STILL^S DISEASE
     Route: 065
     Dates: start: 201401
  2. ETOPOSIDE. [Suspect]
     Active Substance: ETOPOSIDE
     Indication: STILL^S DISEASE
     Route: 065
     Dates: start: 201406
  3. ANAKINRA [Suspect]
     Active Substance: ANAKINRA
     Indication: PRODUCT USED FOR UNKNOWN INDICATION
     Route: 065
     Dates: start: 201509
  4. METHYLPREDNISOLONE. [Suspect]
     Active Substance: METHYLPREDNISOLONE
     Indication: PRODUCT USED FOR UNKNOWN INDICATION
     Route: 065
     Dates: start: 201509
  5. TOCILIZUMAB. [Suspect]
     Active Substance: TOCILIZUMAB
     Indication: STILL^S DISEASE
     Route: 065
  6. ACYCLOVIR [ACICLOVIR] [Suspect]
     Active Substance: ACYCLOVIR
     Indication: VARICELLA
     Route: 042
     Dates: start: 201703
  7. RITUXIMAB. [Suspect]
     Active Substance: RITUXIMAB
     Indication: STILL^S DISEASE
     Route: 065
     Dates: start: 20140601
  8. DEXAMETHASONE. [Suspect]
     Active Substance: DEXAMETHASONE
     Indication: STILL^S DISEASE
     Route: 065
     Dates: start: 201405
  9. CYCLOSPORINE. [Suspect]
     Active Substance: CYCLOSPORINE
     Indication: STILL^S DISEASE
     Route: 065
     Dates: start: 201406
  10. MELOXICAM. [Suspect]
     Active Substance: MELOXICAM
     Indication: PRODUCT USED FOR UNKNOWN INDICATION
     Route: 065
  11. CEFTRIAXONE. [Suspect]
     Active Substance: CEFTRIAXONE
     Indication: VARICELLA
     Route: 065
     Dates: start: 201703

REACTIONS (11)
  - Encephalitis [Unknown]
  - Coma [Unknown]
  - Condition aggravated [Unknown]
  - Diarrhoea [Unknown]
  - Enterocolitis [Unknown]
  - Thrombocytopenia [Unknown]
  - Genetic polymorphism [Unknown]
  - Vomiting [Unknown]
  - Varicella [Unknown]
  - Sepsis [Unknown]
  - Autoinflammatory disease [Unknown]
